FAERS Safety Report 8418651-6 (Version None)
Quarter: 2012Q2

REPORT INFORMATION
  Report Type: 
  Country: None (occurrence: None)
  Receive Date: 20120607
  Receipt Date: 20120530
  Transmission Date: 20120825
  Serious: Yes (Hospitalization)
  Sender: FDA-Public Use
  Company Number: AU-ELI_LILLY_AND_COMPANY-AU201206000496

PATIENT
  Sex: Female

DRUGS (2)
  1. FORTEO [Suspect]
     Indication: OSTEOPOROSIS
     Dosage: UNK, QD
     Dates: start: 20120427, end: 20120501
  2. FORTEO [Suspect]
     Dosage: UNK
     Dates: start: 20120501

REACTIONS (2)
  - NAUSEA [None]
  - INTESTINAL OBSTRUCTION [None]
